FAERS Safety Report 18453931 (Version 2)
Quarter: 2020Q4

REPORT INFORMATION
  Report Type: Spontaneous
  Country: US (occurrence: US)
  Receive Date: 20201102
  Receipt Date: 20201229
  Transmission Date: 20210114
  Serious: No
  Sender: FDA-Public Use
  Company Number: US-SA-2020SA307398

PATIENT

DRUGS (6)
  1. MUPIROCIN. [Concomitant]
     Active Substance: MUPIROCIN
  2. OMEGA 3 6 9 [OMEGA 9 FATTY ACIDS;OMEGA-3 FATTY ACIDS;OMEGA-6 FATTY ACI [Concomitant]
  3. VANICREAM [Concomitant]
     Active Substance: TITANIUM DIOXIDE\ZINC OXIDE
  4. ZYRTEC-D [Concomitant]
     Active Substance: CETIRIZINE HYDROCHLORIDE\PSEUDOEPHEDRINE HYDROCHLORIDE
     Dosage: UNK UNK, BID
  5. DUPIXENT [Suspect]
     Active Substance: DUPILUMAB
     Indication: DERMATITIS ATOPIC
     Dosage: 88 MG, QOW (0.5ML)
     Route: 058
  6. DUPIXENT [Suspect]
     Active Substance: DUPILUMAB
     Indication: ECZEMA

REACTIONS (1)
  - Off label use [Unknown]
